FAERS Safety Report 7818364-5 (Version None)
Quarter: 2011Q4

REPORT INFORMATION
  Report Type: 
  Country: None (occurrence: None)
  Receive Date: 20111017
  Receipt Date: 20111012
  Transmission Date: 20120403
  Serious: Yes (Hospitalization)
  Sender: FDA-Public Use
  Company Number: CHNY2006JP02783

PATIENT
  Age: 84 Year
  Sex: Female

DRUGS (4)
  1. FAMOTIDINE [Concomitant]
  2. SIMVASTATIN [Concomitant]
  3. SLOW-FE [Suspect]
     Indication: IRON DEFICIENCY ANAEMIA
     Route: 048
  4. LANSOPRAZOLE [Concomitant]

REACTIONS (3)
  - GASTRITIS ATROPHIC [None]
  - SCIATICA [None]
  - MELANOSIS [None]
